FAERS Safety Report 12269467 (Version 1)
Quarter: 2016Q2

REPORT INFORMATION
  Report Type: Report from Study
  Country: US (occurrence: US)
  Receive Date: 20160414
  Receipt Date: 20160414
  Transmission Date: 20160815
  Serious: No
  Sender: FDA-Public Use
  Company Number: ADR-2014-02091

PATIENT
  Age: 55 Year
  Sex: Male

DRUGS (12)
  1. BUPIVACAINE. [Suspect]
     Active Substance: BUPIVACAINE
     Dosage: 18.631 MG/DAY
     Route: 037
     Dates: start: 20140915
  2. COMPOUNDED BACLOFEN [Suspect]
     Active Substance: BACLOFEN
     Dosage: 239.86 MCGDAY
     Route: 037
     Dates: start: 20140714
  3. DROPERIDOL. [Suspect]
     Active Substance: DROPERIDOL
     Dosage: 199.88 MCG/DAY
     Route: 037
     Dates: start: 20140714
  4. DILAUDID [Suspect]
     Active Substance: HYDROMORPHONE HYDROCHLORIDE
     Dosage: 0.9994 MG/DAY
     Route: 037
     Dates: start: 20140714
  5. COMPOUNDED BACLOFEN [Suspect]
     Active Substance: BACLOFEN
     Dosage: 420.18 MCG/DAY
     Route: 037
     Dates: start: 20141010
  6. BUPIVACAINE. [Suspect]
     Active Substance: BUPIVACAINE
     Dosage: 11.993 MG/DAY
     Route: 037
     Dates: start: 20140714
  7. COMPOUNDED BACLOFEN [Suspect]
     Active Substance: BACLOFEN
     Dosage: 372.61 MCG/DAY
     Route: 037
     Dates: start: 20140915
  8. DROPERIDOL. [Suspect]
     Active Substance: DROPERIDOL
     Dosage: 310.51 MCG/DAY
     Route: 037
     Dates: start: 20140915
  9. DILAUDID [Suspect]
     Active Substance: HYDROMORPHONE HYDROCHLORIDE
     Dosage: 1.7508 MG/DAY
     Route: 037
     Dates: start: 20141010
  10. DROPERIDOL. [Suspect]
     Active Substance: DROPERIDOL
     Dosage: 350.15 MCG/DAY
     Route: 037
     Dates: start: 20141010
  11. DILAUDID [Suspect]
     Active Substance: HYDROMORPHONE HYDROCHLORIDE
     Dosage: 1.5526 MG/DAY
     Route: 037
     Dates: start: 20140915
  12. BUPIVACAINE. [Suspect]
     Active Substance: BUPIVACAINE
     Dosage: 21.009 MG/DAY
     Route: 037
     Dates: start: 20141010

REACTIONS (3)
  - Hypoaesthesia [Recovered/Resolved]
  - Sedation [Recovered/Resolved]
  - Adverse drug reaction [Recovered/Resolved]

NARRATIVE: CASE EVENT DATE: 20140808
